FAERS Safety Report 9171083 (Version 1)
Quarter: 2013Q1

REPORT INFORMATION
  Report Type: Spontaneous
  Country: US (occurrence: None)
  Receive Date: 20130311
  Receipt Date: 20130311
  Transmission Date: 20140127
  Serious: Yes (Other)
  Sender: FDA-Public Use
  Company Number: 13-00841

PATIENT
  Age: 18 Year
  Sex: Male
  Weight: 77.11 kg

DRUGS (1)
  1. ASTHMANEFRIN [Suspect]
     Indication: ASTHMA
     Dosage: 2 INHALATIONS TWICE 054
     Route: 055
     Dates: start: 20130220, end: 20130222

REACTIONS (3)
  - Drug ineffective [None]
  - Heart rate increased [None]
  - Asthma [None]
